FAERS Safety Report 5640406-6 (Version None)
Quarter: 2008Q1

REPORT INFORMATION
  Report Type: 
  Country: None (occurrence: None)
  Receive Date: 20080227
  Receipt Date: 20080125
  Transmission Date: 20080703
  Serious: Yes (Hospitalization)
  Sender: FDA-Public Use
  Company Number: US-BAXTER-2008BH000758

PATIENT
  Age: 76 Year
  Sex: Female
  Weight: 48 kg

DRUGS (5)
  1. HEPARIN SODIUM [Suspect]
     Indication: PROPHYLAXIS
     Dosage: DOSE UNIT:CUBIC CENTIMETER
     Route: 033
     Dates: start: 20080105, end: 20080117
  2. CLONIDINE [Concomitant]
     Indication: HYPERTENSION
     Dosage: DOSE UNIT:UNKNOWN
     Route: 048
     Dates: start: 20050101
  3. PHOSLO [Concomitant]
     Indication: RENAL FAILURE
     Dosage: DOSE UNIT:UNKNOWN
     Route: 048
     Dates: start: 20070101
  4. XANAX [Concomitant]
     Indication: NERVOUSNESS
     Dosage: DOSE UNIT:UNKNOWN
     Route: 048
     Dates: start: 20050101
  5. EYE DROPS [Concomitant]
     Indication: GLAUCOMA
     Dosage: DOSE UNIT:OTHER
     Route: 047
     Dates: start: 20070101

REACTIONS (6)
  - ABDOMINAL PAIN [None]
  - ASPIRATION [None]
  - DIARRHOEA [None]
  - DYSPHAGIA [None]
  - NAUSEA [None]
  - PERITONITIS [None]
